FAERS Safety Report 17892731 (Version 1)
Quarter: 2020Q2

REPORT INFORMATION
  Report Type: Other
  Country: JP (occurrence: JP)
  Receive Date: 20200613
  Receipt Date: 20200613
  Transmission Date: 20200714
  Serious: Yes (Death)
  Sender: FDA-Public Use
  Company Number: JP-NUVO PHARMACEUTICALS INC-2085769

PATIENT
  Age: 43 Year
  Sex: Male

DRUGS (3)
  1. FOLIC ACID. [Suspect]
     Active Substance: FOLIC ACID
     Indication: FOLATE DEFICIENCY
     Route: 048
  2. COBALAMIN [Suspect]
     Active Substance: COBALAMIN
     Route: 065
  3. THIAMINE. [Suspect]
     Active Substance: THIAMINE
     Route: 042

REACTIONS (2)
  - Haemophagocytic lymphohistiocytosis [Fatal]
  - Peripheral T-cell lymphoma unspecified [Fatal]
